FAERS Safety Report 4653487-3 (Version None)
Quarter: 2005Q2

REPORT INFORMATION
  Report Type: 
  Country: None (occurrence: None)
  Receive Date: 20050502
  Receipt Date: 20050422
  Transmission Date: 20051028
  Serious: Yes (Other)
  Sender: FDA-Public Use
  Company Number: CH-2004-025154

PATIENT
  Age: 41 Year
  Sex: Female
  Weight: 54 kg

DRUGS (1)
  1. MIRENA [Suspect]
     Indication: CONTRACEPTION
     Dosage: 20 UG/DAY, CONT, INTRA-UTERINE
     Route: 015
     Dates: start: 20030711, end: 20031222

REACTIONS (3)
  - AMENORRHOEA [None]
  - CLUSTER HEADACHE [None]
  - POLYCYTHAEMIA VERA [None]
